FAERS Safety Report 12370763 (Version 2)
Quarter: 2016Q2

REPORT INFORMATION
  Report Type: Spontaneous
  Country: IN (occurrence: IN)
  Receive Date: 20160516
  Receipt Date: 20160527
  Transmission Date: 20160815
  Serious: Yes (Death, Other)
  Sender: FDA-Public Use
  Company Number: IN-CIPLA LTD.-2016IN04753

PATIENT

DRUGS (17)
  1. AZITHROMYCIN ANHYDROUS. [Suspect]
     Active Substance: AZITHROMYCIN ANHYDROUS
     Indication: HYPERSENSITIVITY
     Dosage: 500 MG, 24 HOURLY
     Route: 065
  2. ETHAMBUTOL [Suspect]
     Active Substance: ETHAMBUTOL HYDROCHLORIDE
     Indication: TUBERCULOSIS
     Dosage: UNK
     Route: 065
  3. RIFAMPICIN [Concomitant]
     Active Substance: RIFAMPIN
     Indication: TUBERCULOSIS
     Dosage: UNK
     Route: 065
  4. TOLPERISONE [Concomitant]
     Active Substance: TOLPERISONE
     Indication: TENDERNESS
  5. CETIRIZINE [Suspect]
     Active Substance: CETIRIZINE HYDROCHLORIDE
     Indication: HYPERSENSITIVITY
     Dosage: 20 MG, 12 HOURLY
     Route: 065
  6. ASERA P [Concomitant]
     Indication: PAIN
     Dosage: UNK
     Route: 065
  7. ETHAMBUTOL [Suspect]
     Active Substance: ETHAMBUTOL HYDROCHLORIDE
     Dosage: 100 MG, ON DAY 3
     Route: 065
  8. ETHAMBUTOL [Suspect]
     Active Substance: ETHAMBUTOL HYDROCHLORIDE
     Dosage: 800 MG, ON DAY 4
     Route: 065
  9. STREPTOMYCIN [Suspect]
     Active Substance: STREPTOMYCIN\STREPTOMYCIN SULFATE
     Dosage: 500 MG, ON DAY 6
     Route: 065
  10. ASERA P [Concomitant]
     Indication: TENDERNESS
  11. LEVOFLOXACIN. [Suspect]
     Active Substance: LEVOFLOXACIN
     Indication: TUBERCULOSIS
     Dosage: 100 MG, ON DAY 1
     Route: 065
  12. RABEPRAZOLE [Concomitant]
     Active Substance: RABEPRAZOLE
     Dosage: 20 MG, UNK
     Route: 065
  13. LEVOFLOXACIN. [Suspect]
     Active Substance: LEVOFLOXACIN
     Dosage: 500 MG, ON DAY 2
     Route: 065
  14. STREPTOMYCIN [Suspect]
     Active Substance: STREPTOMYCIN\STREPTOMYCIN SULFATE
     Indication: TUBERCULOSIS
     Dosage: 125 MG, ON DAY 5
     Route: 065
  15. TOLPERISONE [Concomitant]
     Active Substance: TOLPERISONE
     Indication: PAIN
     Dosage: 50 MG, UNK
     Route: 065
  16. ISONIAZID. [Concomitant]
     Active Substance: ISONIAZID
     Indication: TUBERCULOSIS
     Dosage: UNK
     Route: 065
  17. PYRAZINAMIDE. [Concomitant]
     Active Substance: PYRAZINAMIDE
     Indication: TUBERCULOSIS
     Dosage: UNK
     Route: 065

REACTIONS (3)
  - Toxic epidermal necrolysis [Unknown]
  - Drug cross-reactivity [Unknown]
  - Cardio-respiratory arrest [Fatal]
